FAERS Safety Report 7121792-7 (Version None)
Quarter: 2010Q4

REPORT INFORMATION
  Report Type: 
  Country: None (occurrence: None)
  Receive Date: 20101124
  Receipt Date: 20101109
  Transmission Date: 20110411
  Serious: Yes (Other)
  Sender: FDA-Public Use
  Company Number: US-AMGEN-USASP2010004363

PATIENT

DRUGS (3)
  1. NEUPOGEN [Suspect]
     Indication: CHEMOTHERAPY
     Dosage: UNK
  2. ARANESP [Suspect]
     Indication: ANAEMIA
     Dosage: UNK
  3. PEMETREXED [Concomitant]
     Dosage: UNK UNK, Q3WK
     Dates: start: 20100901

REACTIONS (2)
  - BACK PAIN [None]
  - RENAL PAIN [None]
